FAERS Safety Report 24143985 (Version 1)
Quarter: 2024Q3

REPORT INFORMATION
  Report Type: Spontaneous
  Country: US (occurrence: US)
  Receive Date: 20240727
  Receipt Date: 20240727
  Transmission Date: 20241017
  Serious: No
  Sender: AMGEN
  Company Number: US-AMGEN-USASP2024146750

PATIENT
  Age: 77 Year
  Sex: Male

DRUGS (9)
  1. REPATHA [Suspect]
     Active Substance: EVOLOCUMAB
     Indication: Blood cholesterol increased
     Dosage: 140 MILLIGRAM, Q2WK
     Route: 058
     Dates: start: 20240722
  2. METFORMIN [Concomitant]
     Active Substance: METFORMIN HYDROCHLORIDE
  3. EZETIMIBE [Concomitant]
     Active Substance: EZETIMIBE
  4. ASPIRIN [Concomitant]
     Active Substance: ASPIRIN
  5. JARDIANCE [Concomitant]
     Active Substance: EMPAGLIFLOZIN
  6. IRBESARTAN [Concomitant]
     Active Substance: IRBESARTAN
  7. AMLODIPINE [Concomitant]
     Active Substance: AMLODIPINE BESYLATE
  8. VITAMIN B12 FORTE [Concomitant]
  9. VITAMINS [Concomitant]
     Active Substance: VITAMINS

REACTIONS (2)
  - Dizziness [Unknown]
  - Extra dose administered [Unknown]

NARRATIVE: CASE EVENT DATE: 20240722
